FAERS Safety Report 15154006 (Version 1)
Quarter: 2018Q3

REPORT INFORMATION
  Report Type: Report from Study
  Country: GB (occurrence: GB)
  Receive Date: 20180717
  Receipt Date: 20180717
  Transmission Date: 20181010
  Serious: Yes (Death)
  Sender: FDA-Public Use
  Company Number: GB-PFIZER INC-2018284678

PATIENT
  Age: 30 Year
  Sex: Male

DRUGS (10)
  1. AMIKACIN SULFATE. [Suspect]
     Active Substance: AMIKACIN SULFATE
     Indication: SEPSIS
     Dosage: UNK
  2. AVIBACTAM SODIUM/CEFTAZIDIME PENTAHYDRATE [Suspect]
     Active Substance: AVIBACTAM SODIUM\CEFTAZIDIME
     Indication: SEPSIS
     Dosage: UNK
  3. MICAFUNGIN [Suspect]
     Active Substance: MICAFUNGIN
     Indication: SEPSIS
     Dosage: UNK
  4. ACICLOVIR [Suspect]
     Active Substance: ACYCLOVIR
     Indication: SEPSIS
     Dosage: UNK
  5. COLISTIN [Suspect]
     Active Substance: COLISTIN
     Indication: SEPSIS
     Dosage: UNK
  6. MEROPENEM. [Suspect]
     Active Substance: MEROPENEM
     Indication: SEPSIS
     Dosage: UNK
  7. TOBRAMYCIN. [Suspect]
     Active Substance: TOBRAMYCIN
     Indication: SEPSIS
     Dosage: UNK
  8. ERYTHROMYCIN. [Suspect]
     Active Substance: ERYTHROMYCIN
     Indication: SEPSIS
     Dosage: UNK
  9. FOSFOMYCIN [Suspect]
     Active Substance: FOSFOMYCIN
     Indication: SEPSIS
     Dosage: UNK
  10. AZTREONAM. [Suspect]
     Active Substance: AZTREONAM
     Indication: SEPSIS
     Dosage: UNK

REACTIONS (12)
  - Haemoglobin decreased [None]
  - Blood bilirubin increased [None]
  - Drug ineffective [Fatal]
  - Multiple organ dysfunction syndrome [None]
  - Haematocrit decreased [None]
  - Platelet count decreased [None]
  - Sepsis [None]
  - Blood urea increased [None]
  - White blood cell count increased [None]
  - Blood albumin decreased [None]
  - C-reactive protein increased [None]
  - Renal replacement therapy [None]
